FAERS Safety Report 9323385 (Version 1)
Quarter: 2013Q2

REPORT INFORMATION
  Report Type: Spontaneous
  Country: CH (occurrence: CH)
  Receive Date: 20130603
  Receipt Date: 20130603
  Transmission Date: 20140414
  Serious: Yes (Hospitalization)
  Sender: FDA-Public Use
  Company Number: CH-ROCHE-1230496

PATIENT
  Age: 44 Year
  Sex: Male

DRUGS (12)
  1. VALIUM [Suspect]
     Indication: SLEEP DISORDER
     Route: 048
     Dates: start: 20130419, end: 20130419
  2. LEPONEX [Suspect]
     Indication: SCHIZOPHRENIA, PARANOID TYPE
     Dosage: DAILY
     Route: 048
  3. SOLIAN [Suspect]
     Indication: SCHIZOPHRENIA, PARANOID TYPE
     Dosage: DAILY
     Route: 048
  4. METHADON [Suspect]
     Indication: MENTAL DISORDER
     Dosage: DAILY
     Route: 048
  5. CATAPRESAN [Suspect]
     Indication: ESSENTIAL HYPERTENSION
     Route: 048
  6. ACIDUM FOLICUM [Concomitant]
     Dosage: DAILY
     Route: 048
  7. DUPHALAC [Concomitant]
     Route: 048
     Dates: end: 201304
  8. BENERVA [Concomitant]
     Dosage: DAILY
     Route: 048
  9. TRIATEC [Concomitant]
     Dosage: DAILY
     Route: 048
  10. TRIATEC HCT [Concomitant]
     Route: 048
     Dates: end: 201304
  11. NORVASC [Concomitant]
     Dosage: DAILY
     Route: 048
  12. AKINETON [Concomitant]
     Route: 048

REACTIONS (4)
  - Respiratory failure [Recovered/Resolved]
  - Somnolence [Recovered/Resolved]
  - Pneumonia [Recovered/Resolved]
  - Vomiting [Recovered/Resolved]
